FAERS Safety Report 26082613 (Version 1)
Quarter: 2025Q4

REPORT INFORMATION
  Report Type: Spontaneous
  Country: US (occurrence: US)
  Receive Date: 20251124
  Receipt Date: 20251124
  Transmission Date: 20260117
  Serious: Yes (Other)
  Sender: MYLAN
  Company Number: US-MYLANLABS-2025M1098763

PATIENT
  Age: 60 Year
  Sex: Male

DRUGS (44)
  1. METHOTREXATE [Suspect]
     Active Substance: METHOTREXATE
     Indication: Acute myeloid leukaemia
     Dosage: UNK, BIWEEKLY, 0.5 WEEK
  2. METHOTREXATE [Suspect]
     Active Substance: METHOTREXATE
     Indication: Metastases to central nervous system
     Dosage: UNK, BIWEEKLY, 0.5 WEEK
  3. METHOTREXATE [Suspect]
     Active Substance: METHOTREXATE
     Indication: Leukaemia recurrent
     Dosage: UNK, BIWEEKLY, 0.5 WEEK
     Route: 037
  4. METHOTREXATE [Suspect]
     Active Substance: METHOTREXATE
     Dosage: UNK, BIWEEKLY, 0.5 WEEK
     Route: 037
  5. METHOTREXATE [Suspect]
     Active Substance: METHOTREXATE
     Dosage: UNK, QW
  6. METHOTREXATE [Suspect]
     Active Substance: METHOTREXATE
     Dosage: UNK, QW
  7. METHOTREXATE [Suspect]
     Active Substance: METHOTREXATE
     Dosage: UNK, QW
     Route: 037
  8. METHOTREXATE [Suspect]
     Active Substance: METHOTREXATE
     Dosage: UNK, QW
     Route: 037
  9. HYDROCORTISONE [Suspect]
     Active Substance: HYDROCORTISONE
     Indication: Acute myeloid leukaemia
     Dosage: UNK, BIWEEKLY, 0.5 WEEK
  10. HYDROCORTISONE [Suspect]
     Active Substance: HYDROCORTISONE
     Indication: Metastases to central nervous system
     Dosage: UNK, BIWEEKLY, 0.5 WEEK
  11. HYDROCORTISONE [Suspect]
     Active Substance: HYDROCORTISONE
     Indication: Leukaemia recurrent
     Dosage: UNK, BIWEEKLY, 0.5 WEEK
     Route: 037
  12. HYDROCORTISONE [Suspect]
     Active Substance: HYDROCORTISONE
     Dosage: UNK, BIWEEKLY, 0.5 WEEK
     Route: 037
  13. HYDROCORTISONE [Suspect]
     Active Substance: HYDROCORTISONE
     Dosage: UNK, QW
  14. HYDROCORTISONE [Suspect]
     Active Substance: HYDROCORTISONE
     Dosage: UNK, QW
  15. HYDROCORTISONE [Suspect]
     Active Substance: HYDROCORTISONE
     Dosage: UNK, QW
     Route: 037
  16. HYDROCORTISONE [Suspect]
     Active Substance: HYDROCORTISONE
     Dosage: UNK, QW
     Route: 037
  17. VENETOCLAX [Suspect]
     Active Substance: VENETOCLAX
     Indication: Acute myeloid leukaemia
     Dosage: UNK
  18. VENETOCLAX [Suspect]
     Active Substance: VENETOCLAX
     Dosage: UNK
     Route: 065
  19. VENETOCLAX [Suspect]
     Active Substance: VENETOCLAX
     Dosage: UNK
     Route: 065
  20. VENETOCLAX [Suspect]
     Active Substance: VENETOCLAX
     Dosage: UNK
  21. CYTARABINE [Suspect]
     Active Substance: CYTARABINE
     Indication: Acute myeloid leukaemia
     Dosage: INDUCTION CHEMOTHERAPY VIA A CENTRAL LINE AND THEN CONTINUED FOR CONSOLIDATION
  22. CYTARABINE [Suspect]
     Active Substance: CYTARABINE
     Indication: Metastases to central nervous system
     Dosage: INDUCTION CHEMOTHERAPY VIA A CENTRAL LINE AND THEN CONTINUED FOR CONSOLIDATION
  23. CYTARABINE [Suspect]
     Active Substance: CYTARABINE
     Indication: Leukaemia recurrent
     Dosage: INDUCTION CHEMOTHERAPY VIA A CENTRAL LINE AND THEN CONTINUED FOR CONSOLIDATION
     Route: 065
  24. CYTARABINE [Suspect]
     Active Substance: CYTARABINE
     Dosage: INDUCTION CHEMOTHERAPY VIA A CENTRAL LINE AND THEN CONTINUED FOR CONSOLIDATION
     Route: 065
  25. CYTARABINE [Suspect]
     Active Substance: CYTARABINE
     Dosage: UNK, BIWEEKLY
  26. CYTARABINE [Suspect]
     Active Substance: CYTARABINE
     Dosage: UNK, BIWEEKLY
  27. CYTARABINE [Suspect]
     Active Substance: CYTARABINE
     Dosage: UNK, BIWEEKLY
     Route: 037
  28. CYTARABINE [Suspect]
     Active Substance: CYTARABINE
     Dosage: UNK, BIWEEKLY
     Route: 037
  29. CYTARABINE [Suspect]
     Active Substance: CYTARABINE
     Dosage: UNK, QW
  30. CYTARABINE [Suspect]
     Active Substance: CYTARABINE
     Dosage: UNK, QW
     Route: 037
  31. CYTARABINE [Suspect]
     Active Substance: CYTARABINE
     Dosage: UNK, QW
  32. CYTARABINE [Suspect]
     Active Substance: CYTARABINE
     Dosage: UNK, QW
     Route: 037
  33. DECITABINE [Suspect]
     Active Substance: DECITABINE
     Indication: Acute myeloid leukaemia
     Dosage: UNK
  34. DECITABINE [Suspect]
     Active Substance: DECITABINE
     Dosage: UNK
     Route: 065
  35. DECITABINE [Suspect]
     Active Substance: DECITABINE
     Dosage: UNK
     Route: 065
  36. DECITABINE [Suspect]
     Active Substance: DECITABINE
     Dosage: UNK
  37. DAUNORUBICIN [Concomitant]
     Active Substance: DAUNORUBICIN
     Indication: Acute myeloid leukaemia
     Dosage: UNK, INDUCTION CHEMOTHERAPY VIA A CENTRAL LINE AND THEN CONTINUED FOR CONSOLIDATION
  38. DAUNORUBICIN [Concomitant]
     Active Substance: DAUNORUBICIN
     Dosage: UNK, INDUCTION CHEMOTHERAPY VIA A CENTRAL LINE AND THEN CONTINUED FOR CONSOLIDATION
     Route: 065
  39. DAUNORUBICIN [Concomitant]
     Active Substance: DAUNORUBICIN
     Dosage: UNK, INDUCTION CHEMOTHERAPY VIA A CENTRAL LINE AND THEN CONTINUED FOR CONSOLIDATION
     Route: 065
  40. DAUNORUBICIN [Concomitant]
     Active Substance: DAUNORUBICIN
     Dosage: UNK, INDUCTION CHEMOTHERAPY VIA A CENTRAL LINE AND THEN CONTINUED FOR CONSOLIDATION
  41. LEVETIRACETAM [Concomitant]
     Active Substance: LEVETIRACETAM
     Indication: Seizure prophylaxis
     Dosage: UNK
  42. LEVETIRACETAM [Concomitant]
     Active Substance: LEVETIRACETAM
     Dosage: UNK
     Route: 065
  43. LEVETIRACETAM [Concomitant]
     Active Substance: LEVETIRACETAM
     Dosage: UNK
     Route: 065
  44. LEVETIRACETAM [Concomitant]
     Active Substance: LEVETIRACETAM
     Dosage: UNK

REACTIONS (5)
  - Back pain [Unknown]
  - Nervous system disorder [Unknown]
  - Neurotoxicity [Unknown]
  - Drug ineffective [Unknown]
  - Disease progression [Unknown]
